FAERS Safety Report 4634161-6 (Version None)
Quarter: 2005Q2

REPORT INFORMATION
  Report Type: 
  Country: None (occurrence: None)
  Receive Date: 20050413
  Receipt Date: 20050411
  Transmission Date: 20051028
  Serious: Yes (Death)
  Sender: FDA-Public Use
  Company Number: US-JNJFOC-20050306350

PATIENT
  Sex: Male

DRUGS (1)
  1. LEVAQUIN [Suspect]
     Dosage: DRUG NOT GIVEN

REACTIONS (1)
  - DEATH [None]
